FAERS Safety Report 18283870 (Version 1)
Quarter: 2020Q3

REPORT INFORMATION
  Report Type: Spontaneous
  Country: JP (occurrence: JP)
  Receive Date: 20200918
  Receipt Date: 20200918
  Transmission Date: 20201103
  Serious: Yes (Other)
  Sender: FDA-Public Use
  Company Number: JP-PFIZER INC-2020358131

PATIENT

DRUGS (1)
  1. LYRICA [Suspect]
     Active Substance: PREGABALIN
     Dosage: UNK
     Route: 048

REACTIONS (5)
  - Angioedema [Unknown]
  - Stomatitis [Unknown]
  - Mucosal inflammation [Unknown]
  - Tongue oedema [Unknown]
  - Oculomucocutaneous syndrome [Unknown]
